FAERS Safety Report 7319116-5 (Version None)
Quarter: 2011Q1

REPORT INFORMATION
  Report Type: 
  Country: None (occurrence: None)
  Receive Date: 20110228
  Receipt Date: 20110214
  Transmission Date: 20110831
  Serious: Yes (Other)
  Sender: FDA-Public Use
  Company Number: PHHY2011US13613

PATIENT

DRUGS (1)
  1. RECLAST [Suspect]
     Dosage: UNK

REACTIONS (4)
  - RENAL DISORDER [None]
  - HEART RATE INCREASED [None]
  - CONFUSIONAL STATE [None]
  - HYPERTENSION [None]
